FAERS Safety Report 6885618-9 (Version None)
Quarter: 2010Q3

REPORT INFORMATION
  Report Type: 
  Country: None (occurrence: None)
  Receive Date: 20100729
  Receipt Date: 20080416
  Transmission Date: 20110219
  Serious: No
  Sender: FDA-Public Use
  Company Number: US-PFIZER INC-2008034375

PATIENT
  Sex: Female
  Weight: 72.727 kg

DRUGS (11)
  1. CELEBREX [Suspect]
     Indication: ANTIINFLAMMATORY THERAPY
     Dates: start: 20080301, end: 20080401
  2. SERTRALINE HYDROCHLORIDE [Concomitant]
  3. FOSAMAX [Concomitant]
  4. FERROUS SULFATE [Concomitant]
  5. ACETYLSALICYLIC ACID SRT [Concomitant]
  6. FISH OIL [Concomitant]
  7. ASCORBIC ACID [Concomitant]
  8. VITAMIN E [Concomitant]
  9. CENTRUM SILVER [Concomitant]
  10. CALCIUM [Concomitant]
  11. OSTEO BI-FLEX [Concomitant]

REACTIONS (1)
  - DIARRHOEA [None]
